FAERS Safety Report 10983793 (Version 1)
Quarter: 2015Q2

REPORT INFORMATION
  Report Type: Spontaneous
  Country: US (occurrence: None)
  Receive Date: 20150401
  Receipt Date: 20150401
  Transmission Date: 20150821
  Serious: Yes (Life-Threatening, Hospitalization)
  Sender: FDA-Public Use
  Company Number: 200033224

PATIENT
  Age: 7 Year
  Sex: Female

DRUGS (1)
  1. GERM-X [Suspect]
     Active Substance: ALCOHOL
     Dosage: INTENTIONAL INGESTION, EXACT DOSAGE UNKNOWN
     Dates: start: 20150319, end: 20150320

REACTIONS (2)
  - Alcohol poisoning [None]
  - Intentional product use issue [None]

NARRATIVE: CASE EVENT DATE: 20150319
